FAERS Safety Report 4498080-0 (Version None)
Quarter: 2004Q3

REPORT INFORMATION
  Report Type: 
  Country: None (occurrence: None)
  Receive Date: 20040927
  Receipt Date: 20040726
  Transmission Date: 20050211
  Serious: No
  Sender: FDA-Public Use
  Company Number: USA040773745

PATIENT
  Age: 19 Year
  Sex: Male

DRUGS (3)
  1. STRATTERA [Suspect]
     Dosage: 80 MG DAY
     Dates: start: 20040501
  2. GEODON [Concomitant]
  3. VISTARIL [Concomitant]

REACTIONS (1)
  - DRUG SCREEN POSITIVE [None]
